FAERS Safety Report 6839181-9 (Version None)
Quarter: 2010Q3

REPORT INFORMATION
  Report Type: 
  Country: None (occurrence: None)
  Receive Date: 20100714
  Receipt Date: 20100330
  Transmission Date: 20110219
  Serious: Yes (Hospitalization, Other)
  Sender: FDA-Public Use
  Company Number: US-ASTRAZENECA-2006UW14649

PATIENT
  Age: 709 Month
  Sex: Female
  Weight: 80.7 kg

DRUGS (12)
  1. SEROQUEL [Suspect]
     Indication: ANXIETY
     Dosage: 100 MG TO 600 MG  DAILY
     Route: 048
     Dates: start: 20030101, end: 20060201
  2. SEROQUEL [Suspect]
     Indication: DEPRESSION
     Dosage: 100 MG TO 600 MG  DAILY
     Route: 048
     Dates: start: 20030101, end: 20060201
  3. SEROQUEL [Suspect]
     Route: 048
     Dates: start: 20040326
  4. SEROQUEL [Suspect]
     Route: 048
     Dates: start: 20040326
  5. ABILIFY [Concomitant]
     Dates: start: 20050101
  6. CLOZAPINE [Concomitant]
  7. HALOPERIDOL [Concomitant]
     Dates: start: 20050101
  8. PROTONIX [Concomitant]
     Indication: GASTROOESOPHAGEAL REFLUX DISEASE
     Route: 048
     Dates: start: 20051026
  9. KEPPRA [Concomitant]
     Indication: CONVULSION
     Route: 048
     Dates: start: 20051026
  10. LISINOPRIL [Concomitant]
     Indication: HYPERTENSION
     Route: 048
     Dates: start: 20051026
  11. ZOCOR [Concomitant]
     Route: 048
     Dates: start: 20051130
  12. NORVASC [Concomitant]
     Route: 048
     Dates: start: 20060609

REACTIONS (10)
  - BLOOD CHOLESTEROL INCREASED [None]
  - BLOOD TRIGLYCERIDES INCREASED [None]
  - BREAST CANCER [None]
  - DIABETES MELLITUS [None]
  - DIABETIC COMA [None]
  - DIABETIC KETOACIDOSIS [None]
  - DIABETIC NEUROPATHY [None]
  - DIABETIC RETINOPATHY [None]
  - NEOPLASM MALIGNANT [None]
  - TYPE 2 DIABETES MELLITUS [None]
